FAERS Safety Report 26036989 (Version 1)
Quarter: 2025Q4

REPORT INFORMATION
  Report Type: Spontaneous
  Country: EU (occurrence: EU)
  Receive Date: 20251112
  Receipt Date: 20251112
  Transmission Date: 20260118
  Serious: Yes (Other)
  Sender: PFIZER
  Company Number: EU-PFIZER INC-PV202500122297

PATIENT
  Age: 44 Year
  Sex: Male

DRUGS (4)
  1. TALAZOPARIB [Suspect]
     Active Substance: TALAZOPARIB
     Indication: Prostate cancer metastatic
     Dosage: 0.5 MG, DAILY
     Dates: start: 202505
  2. TALAZOPARIB [Suspect]
     Active Substance: TALAZOPARIB
     Dosage: 0.25 MG, DAILY
     Dates: end: 202509
  3. ENZALUTAMIDE [Suspect]
     Active Substance: ENZALUTAMIDE
     Indication: Prostate cancer metastatic
     Dosage: 160 MG, DAILY
     Dates: start: 202505
  4. ENZALUTAMIDE [Suspect]
     Active Substance: ENZALUTAMIDE
     Dosage: 80 MG, DAILY
     Dates: end: 202509

REACTIONS (10)
  - Thrombocytopenia [Recovering/Resolving]
  - Metastases to bone [Unknown]
  - Malignant neoplasm progression [Unknown]
  - Anaemia [Recovering/Resolving]
  - Dysgeusia [Recovering/Resolving]
  - Food intolerance [Recovering/Resolving]
  - Restless legs syndrome [Recovering/Resolving]
  - Affect lability [Recovering/Resolving]
  - Dry mouth [Recovering/Resolving]
  - Weight decreased [Recovering/Resolving]

NARRATIVE: CASE EVENT DATE: 20250101
